FAERS Safety Report 7676968-7 (Version None)
Quarter: 2011Q3

REPORT INFORMATION
  Report Type: 
  Country: None (occurrence: None)
  Receive Date: 20110805
  Receipt Date: 20110721
  Transmission Date: 20111222
  Serious: Yes (Other)
  Sender: FDA-Public Use
  Company Number: 2011MA005418

PATIENT
  Age: 20 Year
  Sex: Female

DRUGS (1)
  1. CITALOPRAM HYDROBROMIDE [Suspect]
     Indication: DEPRESSION
     Dosage: 20MG PO
     Route: 048
     Dates: start: 20110328, end: 20110404

REACTIONS (2)
  - SUICIDAL IDEATION [None]
  - SELF-INJURIOUS IDEATION [None]
